FAERS Safety Report 14571187 (Version 1)
Quarter: 2018Q1

REPORT INFORMATION
  Report Type: Spontaneous
  Country: US (occurrence: US)
  Receive Date: 20180223
  Receipt Date: 20180223
  Transmission Date: 20180509
  Serious: Yes (Hospitalization)
  Sender: FDA-Public Use
  Company Number: None

PATIENT
  Age: 73 Year
  Sex: Male
  Weight: 83 kg

DRUGS (4)
  1. 5-FLUOROURACIL (5-FU) [Suspect]
     Active Substance: FLUOROURACIL
     Dates: end: 20171215
  2. ELOXATIN [Suspect]
     Active Substance: OXALIPLATIN
     Dates: end: 20171215
  3. CAMPTOSAR [Suspect]
     Active Substance: IRINOTECAN HYDROCHLORIDE
     Dates: end: 20171215
  4. LEUCOVORIN CALCIUM. [Suspect]
     Active Substance: LEUCOVORIN CALCIUM
     Dates: end: 20171215

REACTIONS (4)
  - Extradural abscess [None]
  - Infestation [None]
  - Blood culture positive [None]
  - Staphylococcal bacteraemia [None]

NARRATIVE: CASE EVENT DATE: 20171222
